FAERS Safety Report 6293674-4 (Version None)
Quarter: 2009Q3

REPORT INFORMATION
  Report Type: 
  Country: None (occurrence: None)
  Receive Date: 20090803
  Receipt Date: 20090720
  Transmission Date: 20100115
  Serious: Yes (Death, Hospitalization, Other)
  Sender: FDA-Public Use
  Company Number: US-TYCO HEALTHCARE/MALLINCKRODT-T200901104

PATIENT
  Sex: Female
  Weight: 63.492 kg

DRUGS (11)
  1. OPTIMARK [Suspect]
     Indication: ANGIOGRAM
     Dosage: UNK
     Dates: start: 20060818, end: 20060818
  2. MAGNEVIST [Suspect]
     Indication: ANGIOGRAM
     Dosage: UNK
     Dates: start: 20050727, end: 20050727
  3. MAGNEVIST [Suspect]
     Indication: NUCLEAR MAGNETIC RESONANCE IMAGING BRAIN
  4. NEXIUM [Concomitant]
     Dosage: 40 MG, QD
  5. KLONOPIN [Concomitant]
     Dosage: 0.5 MG, QD
  6. NEPHROCAPS [Concomitant]
     Dosage: ONE CAPSULE PER DAY
  7. RENAGEL                            /01459901/ [Concomitant]
     Dosage: 800 MG, TID (WITH EACH MEAL)
  8. LABETALOL HCL [Concomitant]
     Dosage: 300 MG, BID
  9. HYDRALAZINE HCL [Concomitant]
     Dosage: 50 MG, BID
  10. LISINOPRIL [Concomitant]
     Dosage: 20 MG, QD
  11. HUMULIN                            /00646001/ [Concomitant]

REACTIONS (16)
  - ANAEMIA [None]
  - ATRIAL FIBRILLATION [None]
  - CELLULITIS [None]
  - HYPOALBUMINAEMIA [None]
  - LEUKOCYTOSIS [None]
  - NEPHROGENIC SYSTEMIC FIBROSIS [None]
  - OFF LABEL USE [None]
  - OSTEOARTHRITIS [None]
  - OSTEOPENIA [None]
  - OSTEOPOROSIS [None]
  - PNEUMONIA [None]
  - PYREXIA [None]
  - RIB FRACTURE [None]
  - SECONDARY IMMUNODEFICIENCY [None]
  - TRACHEAL STENOSIS [None]
  - VASCULAR CALCIFICATION [None]
